FAERS Safety Report 5194694-3 (Version None)
Quarter: 2006Q4

REPORT INFORMATION
  Report Type: 
  Country: None (occurrence: None)
  Receive Date: 20061229
  Receipt Date: 20061221
  Transmission Date: 20070319
  Serious: Yes (Death)
  Sender: FDA-Public Use
  Company Number: US-JNJFOC-20061206007

PATIENT
  Sex: Female

DRUGS (15)
  1. REMICADE [Suspect]
     Indication: RHEUMATOID ARTHRITIS
     Route: 042
  2. ARAVA [Concomitant]
  3. ASPIRIN [Concomitant]
  4. BENADRYL [Concomitant]
  5. CLONADINE [Concomitant]
  6. NORVASC [Concomitant]
  7. PAXIL [Concomitant]
  8. PREDNISONE TAB [Concomitant]
  9. ALBUTEROL [Concomitant]
  10. ASACOL [Concomitant]
  11. COLACE [Concomitant]
  12. DARVOCET [Concomitant]
  13. HYDROCHLOROTHIAZIDE [Concomitant]
  14. LORAZEPAM [Concomitant]
  15. SOMA [Concomitant]

REACTIONS (1)
  - LUNG NEOPLASM MALIGNANT [None]
